FAERS Safety Report 4921376-2 (Version None)
Quarter: 2006Q1

REPORT INFORMATION
  Report Type: 
  Country: None (occurrence: None)
  Receive Date: 20060224
  Receipt Date: 20051109
  Transmission Date: 20060701
  Serious: Yes (Hospitalization)
  Sender: FDA-Public Use
  Company Number: HQWYE503911NOV05

PATIENT
  Sex: Male
  Weight: 75 kg

DRUGS (11)
  1. ENBREL [Suspect]
     Indication: RHEUMATOID ARTHRITIS
     Route: 058
     Dates: start: 20050607, end: 20050823
  2. ENBREL [Suspect]
     Route: 058
     Dates: start: 20050826, end: 20051001
  3. ENBREL [Suspect]
     Route: 058
     Dates: start: 20051108
  4. PREDNISOLONE [Concomitant]
     Indication: RHEUMATOID ARTHRITIS
     Dosage: 2 MG/DAY, TAB
     Route: 048
  5. EUGLUCON [Concomitant]
     Indication: DIABETES MELLITUS
     Dosage: 5 MG/DAY, TAB
     Route: 048
  6. UNKNOWN [Concomitant]
     Indication: RHEUMATOID ARTHRITIS
     Dosage: 13.5 G/DAY, FGR
     Route: 048
  7. ETIZOLAM [Concomitant]
     Indication: INSOMNIA
     Route: 048
  8. VERAPAMIL HYDROCHLORIDE [Concomitant]
     Indication: ATRIAL FIBRILLATION
     Dosage: 120 MG/DAY, TAB
     Route: 048
  9. ZANTAC [Concomitant]
     Indication: GASTRITIS
     Dosage: 300 MG/DAY, TAB
     Route: 048
  10. MUCOSTA [Concomitant]
     Indication: GASTRITIS
     Route: 048
  11. LAXOBERON [Concomitant]
     Indication: CONSTIPATION
     Dosage: 1 ML/DAY, SOL
     Route: 048

REACTIONS (5)
  - CANDIDA PNEUMONIA [None]
  - CHOLECYSTITIS [None]
  - DIARRHOEA [None]
  - DRUG INEFFECTIVE [None]
  - WHITE BLOOD CELL COUNT INCREASED [None]
